FAERS Safety Report 24315166 (Version 1)
Quarter: 2024Q3

REPORT INFORMATION
  Report Type: Spontaneous
  Country: US (occurrence: US)
  Receive Date: 20240913
  Receipt Date: 20240913
  Transmission Date: 20241017
  Serious: No
  Sender: BAUSCH AND LOMB
  Company Number: US-BAUSCHBL-2024BNL032884

PATIENT
  Sex: Female

DRUGS (2)
  1. KETOTIFEN [Suspect]
     Active Substance: KETOTIFEN
     Indication: Swelling
     Route: 065
  2. KETOTIFEN [Suspect]
     Active Substance: KETOTIFEN
     Indication: Oedema

REACTIONS (1)
  - Drug ineffective [Unknown]
